FAERS Safety Report 8879149 (Version 2)
Quarter: 2012Q4

REPORT INFORMATION
  Report Type: 
  Country: US (occurrence: None)
  Receive Date: 20121102
  Receipt Date: 20121214
  Transmission Date: 20130627
  Serious: Yes (Hospitalization)
  Sender: FDA-Public Use
  Company Number: None

PATIENT
  Sex: Male
  Weight: 65.32 kg

DRUGS (2)
  1. STEROIDS [Suspect]
  2. TRIAMCINOLONE INJECTION [Suspect]

REACTIONS (1)
  - Neurogenic bladder [None]
